FAERS Safety Report 5874977-1 (Version None)
Quarter: 2008Q3

REPORT INFORMATION
  Report Type: 
  Country: None (occurrence: None)
  Receive Date: 20080908
  Receipt Date: 20080908
  Transmission Date: 20090109
  Serious: Yes (Other)
  Sender: FDA-Public Use
  Company Number: None

PATIENT
  Age: 40 Year
  Sex: Female
  Weight: 50.8029 kg

DRUGS (1)
  1. CYMBALTA [Suspect]
     Indication: POSTPARTUM DISORDER
     Dosage: 15MG 1 DAILY PO
     Route: 048
     Dates: start: 20080427, end: 20080427

REACTIONS (5)
  - ABASIA [None]
  - ASTHENIA [None]
  - DIZZINESS [None]
  - FEELING ABNORMAL [None]
  - MOVEMENT DISORDER [None]
